FAERS Safety Report 20490415 (Version 1)
Quarter: 2022Q1

REPORT INFORMATION
  Report Type: Spontaneous
  Country: US (occurrence: None)
  Receive Date: 20220218
  Receipt Date: 20220218
  Transmission Date: 20220423
  Serious: Yes (unspecified)
  Sender: FDA-Public Use
  Company Number: None

PATIENT
  Age: 38 Year
  Sex: Female
  Weight: 85.05 kg

DRUGS (5)
  1. DOXYCYCLINE HYCLATE [Suspect]
     Active Substance: DOXYCYCLINE HYCLATE
     Indication: Eye infection
     Dosage: OTHER QUANTITY : 1 TABLET(S);?FREQUENCY : TWICE A DAY;?
     Route: 048
     Dates: start: 20220205, end: 20220211
  2. ZONEGRAN [Concomitant]
     Active Substance: ZONISAMIDE
  3. KEPPRA [Concomitant]
     Active Substance: LEVETIRACETAM
  4. LAMICTAL [Concomitant]
     Active Substance: LAMOTRIGINE
  5. BUSPAR [Concomitant]
     Active Substance: BUSPIRONE HYDROCHLORIDE

REACTIONS (9)
  - Sinus headache [None]
  - Nausea [None]
  - Depressed mood [None]
  - Paranoia [None]
  - Anxiety [None]
  - Nervousness [None]
  - Suicidal ideation [None]
  - Psychotic disorder [None]
  - Hallucination, auditory [None]

NARRATIVE: CASE EVENT DATE: 20220211
